FAERS Safety Report 18570360 (Version 1)
Quarter: 2020Q4

REPORT INFORMATION
  Report Type: Report from Study
  Country: US (occurrence: US)
  Receive Date: 20201202
  Receipt Date: 20201202
  Transmission Date: 20210114
  Serious: Yes (Hospitalization)
  Sender: FDA-Public Use
  Company Number: US-GW PHARMA-201807USGW0274

PATIENT

DRUGS (6)
  1. KEPPRA [Concomitant]
     Active Substance: LEVETIRACETAM
     Indication: TUBEROUS SCLEROSIS COMPLEX
     Dosage: 1200 MILLIGRAM, BID
     Route: 048
     Dates: start: 20110821
  2. ONFI [Concomitant]
     Active Substance: CLOBAZAM
     Indication: TUBEROUS SCLEROSIS COMPLEX
     Dosage: 10 MILLIGRAM, BID
     Route: 048
     Dates: start: 20130108
  3. EPIDIOLEX [Suspect]
     Active Substance: CANNABIDIOL
     Dosage: 6.5MG/KG, 100 MILLIGRAM, BID
     Route: 048
     Dates: start: 20180728
  4. VIMPAT [Concomitant]
     Active Substance: LACOSAMIDE
     Indication: TUBEROUS SCLEROSIS COMPLEX
     Dosage: 180 MILLIGRAM, BID
     Route: 048
     Dates: start: 20120725
  5. ZONEGRAN [Concomitant]
     Active Substance: ZONISAMIDE
     Indication: TUBEROUS SCLEROSIS COMPLEX
     Dosage: 18 MILLILITER, BID
     Route: 048
     Dates: start: 20170801
  6. EPIDIOLEX [Suspect]
     Active Substance: CANNABIDIOL
     Indication: TUBEROUS SCLEROSIS COMPLEX
     Dosage: 25 MG/KG QD, 400 MILLIGRAM BID
     Route: 048
     Dates: start: 20180629, end: 20180727

REACTIONS (2)
  - Malaise [Recovered/Resolved]
  - Fatigue [Recovered/Resolved]

NARRATIVE: CASE EVENT DATE: 20180727
